FAERS Safety Report 4761244-2 (Version None)
Quarter: 2005Q3

REPORT INFORMATION
  Report Type: 
  Country: None (occurrence: None)
  Receive Date: 20050901
  Receipt Date: 20050823
  Transmission Date: 20060218
  Serious: Yes (Life-Threatening, Hospitalization, Disabling, Other)
  Sender: FDA-Public Use
  Company Number: 2005-08-1524

PATIENT
  Age: 55 Year
  Sex: Female
  Weight: 44 kg

DRUGS (6)
  1. VIRAFERONPEG [Suspect]
     Indication: HEPATITIS C
     Dosage: 50 UG SUBCUTANEOUS
     Route: 058
     Dates: start: 20040101, end: 20041027
  2. RIBAVIRIN [Suspect]
     Indication: HEPATITIS C
     Dates: start: 20040101, end: 20041001
  3. CORTANCYL [Suspect]
     Dosage: 20 MG QD ORAL
     Route: 048
     Dates: end: 20050115
  4. CORTICOSTEROID NOS [Concomitant]
  5. CORTICOSTEROID NOS [Concomitant]
  6. RECORMON (EPOETIN BETA) [Concomitant]

REACTIONS (13)
  - ACUTE VESTIBULAR SYNDROME [None]
  - BALANCE DISORDER [None]
  - CEREBELLAR SYNDROME [None]
  - CONDITION AGGRAVATED [None]
  - ENCEPHALOPATHY [None]
  - HEPATITIS C [None]
  - IMMUNE RECONSTITUTION SYNDROME [None]
  - NON-HODGKIN'S LYMPHOMA RECURRENT [None]
  - NUCLEAR MAGNETIC RESONANCE IMAGING ABNORMAL [None]
  - PROGRESSIVE MULTIFOCAL LEUKOENCEPHALOPATHY [None]
  - PYELONEPHRITIS [None]
  - SEPSIS [None]
  - TINNITUS [None]
